FAERS Safety Report 23971194 (Version 2)
Quarter: 2024Q2

REPORT INFORMATION
  Report Type: Spontaneous
  Country: PL (occurrence: PL)
  Receive Date: 20240613
  Receipt Date: 20240624
  Transmission Date: 20240716
  Serious: Yes (Hospitalization)
  Sender: FDA-Public Use
  Company Number: PL-Hugel Aesthetics-2158081

PATIENT
  Age: 48 Year
  Sex: Female

DRUGS (4)
  1. LETYBO [Suspect]
     Active Substance: LETIBOTULINUMTOXINA-WLBG
     Route: 030
     Dates: start: 20240517, end: 20240517
  2. Bilastine-Clatra [Concomitant]
  3. FEXOFENADINE [Concomitant]
     Active Substance: FEXOFENADINE HYDROCHLORIDE
  4. DEXAMETHASONE [Concomitant]
     Active Substance: DEXAMETHASONE

REACTIONS (15)
  - Dyspnoea [Recovering/Resolving]
  - Swelling [Recovering/Resolving]
  - Erythema [Recovering/Resolving]
  - Throat tightness [Unknown]
  - Paraesthesia oral [Recovering/Resolving]
  - Chest discomfort [Recovering/Resolving]
  - Headache [Not Recovered/Not Resolved]
  - Migraine [Not Recovered/Not Resolved]
  - Off label use [Recovering/Resolving]
  - Histamine level increased [Recovering/Resolving]
  - Erythema [Recovering/Resolving]
  - Swelling face [Not Recovered/Not Resolved]
  - Erythema [Recovering/Resolving]
  - Dyspnoea [Recovering/Resolving]
  - Chest pain [Recovering/Resolving]

NARRATIVE: CASE EVENT DATE: 20240517
